FAERS Safety Report 4870005-5 (Version None)
Quarter: 2005Q4

REPORT INFORMATION
  Report Type: 
  Country: None (occurrence: None)
  Receive Date: 20051223
  Receipt Date: 20051216
  Transmission Date: 20060501
  Serious: Yes (Death)
  Sender: FDA-Public Use
  Company Number: R301377-PAP-USA

PATIENT
  Age: 78 Year
  Sex: Female
  Weight: 54.9 kg

DRUGS (8)
  1. ACIPHEX [Suspect]
     Indication: GASTROOESOPHAGEAL REFLUX DISEASE
     Dosage: 20 MG, ORAL
     Route: 048
     Dates: end: 20031201
  2. REGLAN [Concomitant]
  3. HCTZ (HYDROCHLOROTHIAZIDE) [Concomitant]
  4. LIPITOR [Concomitant]
  5. ALLEGRA [Concomitant]
  6. THEODOR (THEOPHYLLINE) [Concomitant]
  7. VERAPAMIL [Concomitant]
  8. LASIX [Concomitant]

REACTIONS (4)
  - BRONCHITIS CHRONIC [None]
  - HYPERTENSION [None]
  - INTESTINAL PERFORATION [None]
  - PAIN [None]
